FAERS Safety Report 5075395-9 (Version None)
Quarter: 2006Q3

REPORT INFORMATION
  Report Type: 
  Country: None (occurrence: None)
  Receive Date: 20060807
  Receipt Date: 20060807
  Transmission Date: 20061208
  Serious: No
  Sender: FDA-Public Use
  Company Number: None

PATIENT
  Age: 25 Year
  Sex: Female
  Weight: 55.3388 kg

DRUGS (3)
  1. CLARITHROMYCIN 500 MG TABLETS  500 MG TEVA USA [Suspect]
     Indication: BRONCHITIS
     Dosage: 20 PILLS TOTAL  1 PILL TWICE A DAY PO
     Route: 048
     Dates: start: 20060728, end: 20060804
  2. BIAXIN [Concomitant]
  3. CLARITHROMYCIN [Concomitant]

REACTIONS (4)
  - DRUG INEFFECTIVE [None]
  - DYSGEUSIA [None]
  - DYSPEPSIA [None]
  - INSOMNIA [None]
